FAERS Safety Report 20486698 (Version 1)
Quarter: 2022Q1

REPORT INFORMATION
  Report Type: Spontaneous
  Country: US (occurrence: US)
  Receive Date: 20220217
  Receipt Date: 20220217
  Transmission Date: 20220423
  Serious: No
  Sender: FDA-Public Use
  Company Number: US-MYLANLABS-2022M1009429

PATIENT
  Sex: Female
  Weight: 79.38 kg

DRUGS (1)
  1. VALSARTAN [Suspect]
     Active Substance: VALSARTAN
     Indication: Hypertension
     Dosage: 160 MILLIGRAM, AM, 160MG ONE TABLET EVERY MORNING BY MOUTH
     Route: 048

REACTIONS (4)
  - Breast cyst [Unknown]
  - Cyst [Unknown]
  - Breast neoplasm [Unknown]
  - Neoplasm [Unknown]
